FAERS Safety Report 9670845 (Version 2)
Quarter: 2013Q4

REPORT INFORMATION
  Report Type: Spontaneous
  Country: GB (occurrence: GB)
  Receive Date: 20131106
  Receipt Date: 20131125
  Transmission Date: 20140711
  Serious: Yes (Other)
  Sender: FDA-Public Use
  Company Number: GB-RANBAXY-2013RR-74899

PATIENT
  Sex: Male

DRUGS (3)
  1. FLUOXETINE [Suspect]
     Indication: DEPRESSED MOOD
     Dosage: UNK
     Route: 065
  2. CODEINE [Concomitant]
     Indication: PRODUCT USED FOR UNKNOWN INDICATION
     Dosage: UNK
     Route: 065
  3. ACICLOVIR [Concomitant]
     Indication: ENCEPHALOPATHY
     Dosage: UNK
     Route: 042

REACTIONS (4)
  - Serotonin syndrome [Recovered/Resolved]
  - Convulsion [Recovered/Resolved]
  - Joint dislocation [Recovered/Resolved]
  - Spinal compression fracture [Recovered/Resolved]
